FAERS Safety Report 12272640 (Version 6)
Quarter: 2016Q4

REPORT INFORMATION
  Report Type: Report from Study
  Country: CA (occurrence: CA)
  Receive Date: 20160415
  Receipt Date: 20161129
  Transmission Date: 20170207
  Serious: Yes (Hospitalization)
  Sender: FDA-Public Use
  Company Number: CA-HLSUS-2016-CA-000007

PATIENT
  Age: 53 Year
  Sex: Female
  Weight: 120.4 kg

DRUGS (5)
  1. JANUMET [Concomitant]
     Active Substance: METFORMIN HYDROCHLORIDE\SITAGLIPTIN PHOSPHATE
  2. CLOZARIL [Suspect]
     Active Substance: CLOZAPINE
     Indication: MENTAL DISORDER
     Dosage: 100MG MORNING, 200MG BED TIME
     Route: 048
     Dates: start: 20070406
  3. LIPITOR [Concomitant]
     Active Substance: ATORVASTATIN CALCIUM
     Route: 048
  4. VITAMIN D [Concomitant]
     Active Substance: CHOLECALCIFEROL
  5. VENTOLIN [Concomitant]
     Active Substance: ALBUTEROL SULFATE

REACTIONS (9)
  - Chronic kidney disease [Unknown]
  - Leukopenia [Unknown]
  - Vaginal haemorrhage [Unknown]
  - Fatigue [Unknown]
  - Neutropenia [Unknown]
  - Headache [Unknown]
  - Anaemia [Unknown]
  - Cervix neoplasm [Recovered/Resolved with Sequelae]
  - Central obesity [Unknown]

NARRATIVE: CASE EVENT DATE: 20151222
